FAERS Safety Report 25579131 (Version 2)
Quarter: 2025Q3

REPORT INFORMATION
  Report Type: Spontaneous
  Country: US (occurrence: US)
  Receive Date: 20250718
  Receipt Date: 20250904
  Transmission Date: 20251021
  Serious: No
  Sender: GLAUKOS
  Company Number: US-GLK-000660

PATIENT
  Age: 65 Year
  Sex: Female

DRUGS (9)
  1. IDOSE TR [Suspect]
     Active Substance: TRAVOPROST
     Indication: Intraocular pressure increased
     Route: 047
     Dates: start: 20250610, end: 20250610
  2. LUMIGAN [Concomitant]
     Active Substance: BIMATOPROST
     Indication: Product used for unknown indication
  3. LUMIGAN [Concomitant]
     Active Substance: BIMATOPROST
     Indication: Product used for unknown indication
  4. COSOPT [Concomitant]
     Active Substance: DORZOLAMIDE HYDROCHLORIDE\TIMOLOL MALEATE
     Indication: Product used for unknown indication
  5. COSOPT [Concomitant]
     Active Substance: DORZOLAMIDE HYDROCHLORIDE\TIMOLOL MALEATE
     Indication: Product used for unknown indication
  6. SIMBRINZA [Concomitant]
     Active Substance: BRIMONIDINE TARTRATE\BRINZOLAMIDE
     Indication: Product used for unknown indication
  7. SIMBRINZA [Concomitant]
     Active Substance: BRIMONIDINE TARTRATE\BRINZOLAMIDE
     Indication: Product used for unknown indication
  8. LOTEMAX [Concomitant]
     Active Substance: LOTEPREDNOL ETABONATE
     Indication: Product used for unknown indication
  9. DIAMOX SEQUELS [Concomitant]
     Active Substance: ACETAZOLAMIDE

REACTIONS (2)
  - Intraocular pressure increased [Unknown]
  - Medical device removal [Unknown]

NARRATIVE: CASE EVENT DATE: 20250625
